FAERS Safety Report 5459502-1 (Version None)
Quarter: 2007Q3

REPORT INFORMATION
  Report Type: 
  Country: None (occurrence: None)
  Receive Date: 20070919
  Receipt Date: 20070913
  Transmission Date: 20080115
  Serious: Yes (Hospitalization)
  Sender: FDA-Public Use
  Company Number: B0483797A

PATIENT
  Age: 80 Year
  Sex: Female
  Weight: 47.1 kg

DRUGS (23)
  1. ZOVIRAX [Suspect]
     Indication: ORAL HERPES
     Dosage: 200MG FOUR TIMES PER DAY
     Route: 048
     Dates: start: 20070802, end: 20070806
  2. PREDONINE [Suspect]
     Indication: POLYNEUROPATHY
     Dosage: 50MG PER DAY
     Route: 048
     Dates: start: 20070807, end: 20070808
  3. FAMOTIDINE [Concomitant]
     Route: 048
  4. MUCOSTA [Concomitant]
     Route: 048
  5. ACTONEL [Concomitant]
     Route: 048
  6. ROCALTROL [Concomitant]
     Route: 048
  7. PREDONINE [Concomitant]
     Route: 048
     Dates: start: 20070807
  8. SOL-MELCORT [Concomitant]
     Indication: POLYNEUROPATHY
     Dosage: 1000MG PER DAY
     Route: 042
     Dates: start: 20070804, end: 20070806
  9. RIVOTRIL [Concomitant]
     Route: 048
     Dates: start: 20070712, end: 20070807
  10. LOXONIN [Concomitant]
     Indication: PAIN
     Route: 048
     Dates: start: 20070712
  11. MUCOSTA [Concomitant]
     Indication: GASTRITIS PROPHYLAXIS
     Dosage: 400MG PER DAY
     Route: 048
     Dates: start: 20070712
  12. ASPIRIN [Concomitant]
     Indication: ANGINA PECTORIS
     Dosage: 100MG PER DAY
     Route: 048
     Dates: start: 20070701
  13. PERSANTIN [Concomitant]
     Indication: ANGINA PECTORIS
     Dosage: 75MG PER DAY
     Route: 048
     Dates: start: 20070712
  14. SIGMART [Concomitant]
     Indication: ANGINA PECTORIS
     Dosage: 15MG PER DAY
     Route: 048
     Dates: start: 20070712
  15. JUVELA [Concomitant]
     Indication: PERIPHERAL CIRCULATORY FAILURE
     Dosage: 400MG PER DAY
     Route: 048
     Dates: start: 20070717
  16. MAGMITT [Concomitant]
     Indication: CONSTIPATION
     Dosage: 750MG PER DAY
     Route: 048
     Dates: start: 20070808
  17. CEFZON [Concomitant]
     Indication: URINARY TRACT INFECTION
     Dosage: 300MG PER DAY
     Route: 048
     Dates: start: 20070727
  18. GASTROM [Concomitant]
     Indication: GASTRITIS
     Dosage: 3G PER DAY
     Route: 048
     Dates: start: 20070727
  19. LENDORMIN [Concomitant]
     Indication: INSOMNIA
     Route: 048
     Dates: start: 20070709
  20. OMEPRAZOLE [Concomitant]
     Indication: GASTRITIS PROPHYLAXIS
     Dosage: 10MG PER DAY
     Route: 048
     Dates: start: 20070810
  21. GRAMALIL [Concomitant]
     Indication: RESTLESSNESS
     Dosage: 50MG PER DAY
     Route: 048
     Dates: start: 20070811
  22. SILECE [Concomitant]
     Indication: RESTLESSNESS
     Dosage: 1MG PER DAY
     Route: 048
     Dates: start: 20070807
  23. SERENACE [Concomitant]
     Indication: RESTLESSNESS
     Dosage: .75MG PER DAY
     Route: 048
     Dates: start: 20070807

REACTIONS (10)
  - DELIRIUM [None]
  - DISORIENTATION [None]
  - GASTROINTESTINAL HAEMORRHAGE [None]
  - HYPOKALAEMIA [None]
  - HYPONATRAEMIA [None]
  - NAUSEA [None]
  - PYREXIA [None]
  - RENAL TUBULAR DISORDER [None]
  - RESTLESSNESS [None]
  - VOMITING [None]
